FAERS Safety Report 7810906-9 (Version None)
Quarter: 2011Q4

REPORT INFORMATION
  Report Type: 
  Country: None (occurrence: None)
  Receive Date: 20111013
  Receipt Date: 20111010
  Transmission Date: 20120403
  Serious: Yes (Other)
  Sender: FDA-Public Use
  Company Number: US-PFIZER INC-2011242210

PATIENT
  Sex: Female
  Weight: 63.492 kg

DRUGS (2)
  1. PROGESTOGENS AND ESTROGENS IN COMBINATION [Suspect]
     Dosage: UNK
  2. CELEBREX [Suspect]
     Indication: SPONDYLITIS
     Dosage: 200 MG, 1X/DAY
     Dates: start: 20110901, end: 20110901

REACTIONS (3)
  - CHEST PAIN [None]
  - URTICARIA [None]
  - RASH MACULAR [None]
